FAERS Safety Report 13252492 (Version 1)
Quarter: 2017Q1

REPORT INFORMATION
  Report Type: Spontaneous
  Country: US (occurrence: US)
  Receive Date: 20170220
  Receipt Date: 20170220
  Transmission Date: 20170428
  Serious: No
  Sender: FDA-Public Use
  Company Number: US-COLLEGIUM PHARMACEUTICAL, INC.-2016CGM00031

PATIENT
  Sex: Male

DRUGS (2)
  1. XTAMPZA ER [Suspect]
     Active Substance: OXYCODONE
     Dosage: 2 CAPSULES, 2X/DAY
     Route: 048
     Dates: start: 2016, end: 2016
  2. XTAMPZA ER [Suspect]
     Active Substance: OXYCODONE
     Dosage: 3 CAPSULES, 1X/DAY
     Dates: start: 2016

REACTIONS (2)
  - Somnolence [Recovered/Resolved]
  - Feeling abnormal [Recovered/Resolved]

NARRATIVE: CASE EVENT DATE: 2016
